FAERS Safety Report 20695994 (Version 2)
Quarter: 2022Q2

REPORT INFORMATION
  Report Type: Spontaneous
  Country: JP (occurrence: JP)
  Receive Date: 20220411
  Receipt Date: 20220511
  Transmission Date: 20220721
  Serious: Yes (Hospitalization, Other)
  Sender: FDA-Public Use
  Company Number: JP-ASTELLAS-2022JP004064

PATIENT
  Age: 71 Year
  Sex: Male

DRUGS (9)
  1. PADCEV [Suspect]
     Active Substance: ENFORTUMAB VEDOTIN-EJFV
     Indication: Transitional cell carcinoma
     Dosage: 1.25 MG/KG(81MG), UNKNOWN FREQ.
     Route: 041
     Dates: start: 20220302, end: 202203
  2. PADCEV [Suspect]
     Active Substance: ENFORTUMAB VEDOTIN-EJFV
     Dosage: UNK UNK, UNKNOWN FREQ.
     Route: 041
     Dates: start: 20220315, end: 20220315
  3. PADCEV [Suspect]
     Active Substance: ENFORTUMAB VEDOTIN-EJFV
     Dosage: 1.0 MG/KG, UNKNOWN FREQ.
     Route: 041
  4. KEYTRUDA [Suspect]
     Active Substance: PEMBROLIZUMAB
     Indication: Product used for unknown indication
     Dosage: UNK UNK, UNKNOWN FREQ.
     Route: 065
  5. CALONAL [Concomitant]
     Active Substance: ACETAMINOPHEN
     Indication: Pyrexia
     Dosage: UNK UNK, UNKNOWN FREQ.
     Route: 048
  6. GLYCOSAMINOGLYCANS [Concomitant]
     Active Substance: GLYCOSAMINOGLYCANS
     Indication: Prophylaxis
     Dosage: UNK UNK, UNKNOWN FREQ.
     Route: 065
     Dates: start: 20220308
  7. SOLU-MEDROL [Concomitant]
     Active Substance: METHYLPREDNISOLONE SODIUM SUCCINATE
     Indication: Rash
     Dosage: 500 MG/DAY, UNKNOWN FREQ.
     Route: 065
     Dates: start: 20220315
  8. HEPARIN [Concomitant]
     Active Substance: HEPARIN SODIUM
     Indication: Product used for unknown indication
     Dosage: UNK UNK, UNKNOWN FREQ.
     Route: 065
     Dates: start: 20220315
  9. INSULIN GLARGINE [Concomitant]
     Active Substance: INSULIN GLARGINE
     Indication: Hyperglycaemia
     Dosage: UNK UNK, UNKNOWN FREQ.
     Route: 058
     Dates: start: 20220325

REACTIONS (15)
  - Rash [Recovered/Resolved]
  - Malaise [Unknown]
  - Pain of skin [Recovering/Resolving]
  - Dehydration [Recovered/Resolved]
  - Skin exfoliation [Recovered/Resolved]
  - Constipation [Unknown]
  - Pyrexia [Recovered/Resolved]
  - Taste disorder [Unknown]
  - Pruritus [Recovering/Resolving]
  - Decreased appetite [Unknown]
  - Nausea [Unknown]
  - Mucosal inflammation [Recovered/Resolved]
  - Hyperglycaemia [Recovering/Resolving]
  - Alopecia [Unknown]
  - Peripheral sensory neuropathy [Not Recovered/Not Resolved]

NARRATIVE: CASE EVENT DATE: 20220309
